FAERS Safety Report 5211672-6 (Version None)
Quarter: 2007Q1

REPORT INFORMATION
  Report Type: 
  Country: None (occurrence: None)
  Receive Date: 20070118
  Receipt Date: 20070109
  Transmission Date: 20070707
  Serious: Yes (Hospitalization)
  Sender: FDA-Public Use
  Company Number: FR-JNJFOC-20061105735

PATIENT
  Age: 47 Year
  Sex: Male
  Weight: 60 kg

DRUGS (6)
  1. REMICADE [Suspect]
     Indication: ANKYLOSING SPONDYLITIS
     Dosage: FIVE INFUSIONS RECEIVED
     Route: 042
  2. RIFINAH [Concomitant]
     Route: 048
  3. RIFINAH [Concomitant]
     Indication: TUBERCULOSIS
     Route: 048
  4. NEXIUM [Concomitant]
     Indication: DUODENAL ULCER
     Route: 048
  5. KETOPROFEN [Concomitant]
     Route: 048
  6. OROCAL VITAMIN D3 [Concomitant]
     Indication: OSTEOPOROSIS
     Route: 048

REACTIONS (2)
  - AUTOIMMUNE HEPATITIS [None]
  - CYTOMEGALOVIRUS INFECTION [None]
